FAERS Safety Report 7494949-3 (Version None)
Quarter: 2011Q2

REPORT INFORMATION
  Report Type: 
  Country: None (occurrence: None)
  Receive Date: 20110520
  Receipt Date: 20110510
  Transmission Date: 20111010
  Serious: Yes (Hospitalization)
  Sender: FDA-Public Use
  Company Number: JP-UCBSA-032600

PATIENT
  Age: 47 Year
  Sex: Female

DRUGS (2)
  1. ZONISAMIDE [Concomitant]
     Route: 048
  2. KEPPRA [Suspect]
     Indication: EPILEPSY
     Route: 048
     Dates: start: 20110427, end: 20110502

REACTIONS (1)
  - DRUG ERUPTION [None]
